FAERS Safety Report 9919837 (Version 2)
Quarter: 2014Q1

REPORT INFORMATION
  Report Type: Spontaneous
  Country: US (occurrence: US)
  Receive Date: 20140224
  Receipt Date: 20140224
  Transmission Date: 20141002
  Serious: Yes (Disabling, Other)
  Sender: FDA-Public Use
  Company Number: US-GE HEALTHCARE MEDICAL DIAGNOSTICS-OSCN-PR-0904S-0193

PATIENT
  Age: 40 Year
  Sex: Female

DRUGS (33)
  1. OMNISCAN [Suspect]
     Indication: CEREBROVASCULAR ACCIDENT
     Route: 042
     Dates: start: 20020914, end: 20020914
  2. OMNISCAN [Suspect]
     Indication: CONVULSION
     Route: 042
     Dates: start: 20060606, end: 20060606
  3. OMNISCAN [Suspect]
     Indication: HAEMANGIOMA OF LIVER
     Route: 042
     Dates: start: 20060829, end: 20060829
  4. GADOLINIUM (UNSPECIFIED) [Suspect]
     Indication: CEREBROVASCULAR ACCIDENT
     Route: 042
     Dates: start: 20000222, end: 20000222
  5. GADOLINIUM (UNSPECIFIED) [Suspect]
     Indication: SYSTEMIC LUPUS ERYTHEMATOSUS
  6. GADOLINIUM (UNSPECIFIED) [Suspect]
     Indication: VISUAL FIELD DEFECT
  7. MAGNEVIST [Suspect]
     Indication: CEREBROVASCULAR ACCIDENT
     Route: 042
     Dates: start: 20010508, end: 20010508
  8. MAGNEVIST [Suspect]
     Indication: DYSARTHRIA
     Route: 042
     Dates: start: 20010703, end: 20010703
  9. MAGNEVIST [Suspect]
     Indication: MUSCULAR WEAKNESS
  10. MAGNEVIST [Suspect]
     Indication: SYSTEMIC LUPUS ERYTHEMATOSUS
  11. EPOGEN [Concomitant]
     Indication: ANAEMIA
  12. COUMADIN [Concomitant]
     Indication: ANTIPHOSPHOLIPID SYNDROME
  13. GLEEVAC [Concomitant]
     Indication: PRODUCT USED FOR UNKNOWN INDICATION
  14. XANAX [Concomitant]
     Indication: PRODUCT USED FOR UNKNOWN INDICATION
  15. BISOPROLOL [Concomitant]
     Indication: PRODUCT USED FOR UNKNOWN INDICATION
  16. PHOSLO [Concomitant]
     Indication: PRODUCT USED FOR UNKNOWN INDICATION
  17. PROPOXYPHENE [Concomitant]
     Indication: PRODUCT USED FOR UNKNOWN INDICATION
  18. FOSRENOL [Concomitant]
     Indication: PRODUCT USED FOR UNKNOWN INDICATION
  19. FORTICAL [Concomitant]
     Indication: PRODUCT USED FOR UNKNOWN INDICATION
  20. SILVADENE [Concomitant]
     Indication: PRODUCT USED FOR UNKNOWN INDICATION
  21. PLAQUENIL [Concomitant]
     Indication: PRODUCT USED FOR UNKNOWN INDICATION
  22. CARDURA [Concomitant]
     Indication: PRODUCT USED FOR UNKNOWN INDICATION
  23. RAMIPRIL [Concomitant]
     Indication: PRODUCT USED FOR UNKNOWN INDICATION
  24. METOPROLOL [Concomitant]
     Indication: PRODUCT USED FOR UNKNOWN INDICATION
  25. SOLUMEDROL [Concomitant]
     Indication: PRODUCT USED FOR UNKNOWN INDICATION
  26. CATAPRES [Concomitant]
     Indication: PRODUCT USED FOR UNKNOWN INDICATION
  27. XOPENEX [Concomitant]
     Indication: PRODUCT USED FOR UNKNOWN INDICATION
  28. DIFLUCAN [Concomitant]
     Indication: PRODUCT USED FOR UNKNOWN INDICATION
  29. TRAZODONE [Concomitant]
     Indication: PRODUCT USED FOR UNKNOWN INDICATION
  30. CELEBREX [Concomitant]
     Indication: PRODUCT USED FOR UNKNOWN INDICATION
  31. AVELOX [Concomitant]
     Indication: PRODUCT USED FOR UNKNOWN INDICATION
  32. PREDNISONE [Concomitant]
     Indication: PRODUCT USED FOR UNKNOWN INDICATION
  33. RENAGEL [Concomitant]
     Indication: PRODUCT USED FOR UNKNOWN INDICATION

REACTIONS (1)
  - Nephrogenic systemic fibrosis [Not Recovered/Not Resolved]
